FAERS Safety Report 6674324-1 (Version None)
Quarter: 2010Q2

REPORT INFORMATION
  Report Type: 
  Country: None (occurrence: None)
  Receive Date: 20100409
  Receipt Date: 20100329
  Transmission Date: 20101027
  Serious: Yes (Death)
  Sender: FDA-Public Use
  Company Number: AT-NOVOPROD-306374

PATIENT

DRUGS (1)
  1. NOVORAPID [Suspect]
     Indication: HYPERGLYCAEMIA
     Route: 042

REACTIONS (1)
  - DEATH [None]
